FAERS Safety Report 5665434-6 (Version None)
Quarter: 2008Q1

REPORT INFORMATION
  Report Type: 
  Country: None (occurrence: None)
  Receive Date: 20080314
  Receipt Date: 20071204
  Transmission Date: 20080703
  Serious: No
  Sender: FDA-Public Use
  Company Number: US-ABBOTT-07P-163-0427931-00

PATIENT
  Sex: Female
  Weight: 55.842 kg

DRUGS (2)
  1. HUMIRA [Suspect]
     Indication: RHEUMATOID ARTHRITIS
     Route: 058
     Dates: start: 20071001, end: 20071203
  2. METHOTREXATE [Concomitant]
     Indication: RHEUMATOID ARTHRITIS
     Dates: end: 20071203

REACTIONS (7)
  - CONJUNCTIVITIS [None]
  - EYE INFLAMMATION [None]
  - MIGRAINE [None]
  - PAINFUL RESPIRATION [None]
  - RHINORRHOEA [None]
  - SINUSITIS [None]
  - SWELLING FACE [None]
